FAERS Safety Report 7978375-6 (Version None)
Quarter: 2011Q4

REPORT INFORMATION
  Report Type: 
  Country: None (occurrence: None)
  Receive Date: 20111214
  Receipt Date: 20111208
  Transmission Date: 20120403
  Serious: Yes (Other)
  Sender: FDA-Public Use
  Company Number: BR-PFIZER INC-2011302347

PATIENT
  Age: 54 Year
  Sex: Male
  Weight: 97 kg

DRUGS (9)
  1. VILDAGLIPTIN [Concomitant]
     Indication: DIABETES MELLITUS
     Dosage: 50 MG, 2X/DAY, EVERY 12 HOURS
     Route: 048
  2. INDAPAMIDE [Concomitant]
     Indication: DIURETIC THERAPY
     Dosage: 1.5 MG, 1X/DAY
     Route: 048
  3. CODEINE PHOSPHATE AND ACETAMINOPHEN [Concomitant]
     Indication: ANALGESIC THERAPY
     Dosage: 530 MG, 4X/DAY (EVERY 6 HOURS), IF PAIN
     Route: 048
     Dates: start: 20110128, end: 20110501
  4. ALBENDAZOLE [Concomitant]
     Dosage: UNK
     Route: 048
     Dates: start: 20110401, end: 20110403
  5. GLICLAZIDE [Concomitant]
     Indication: HYPERGLYCAEMIA
     Dosage: 60 MG, 1X/DAY, IN THE MORNING
     Route: 048
  6. SUTENT [Suspect]
     Indication: RENAL CANCER
     Dosage: 50 MG, 1X/DAY, CYCLIC, FOR 28 DAYS
     Route: 048
     Dates: start: 20101224, end: 20110121
  7. VALSARTAN [Concomitant]
     Indication: HYPERTENSION
     Dosage: 320 MG, 1X/DAY
     Route: 048
  8. ALBENDAZOLE [Concomitant]
     Indication: INFECTION PARASITIC
     Dosage: 200 MG, 1X/DAY
     Route: 048
     Dates: start: 20101224, end: 20101226
  9. ALLOPURINOL [Concomitant]
     Indication: HYPERURICAEMIA
     Dosage: 100 MG, 1X/DAY, IN THE MORNING
     Route: 048
     Dates: start: 20110128, end: 20110228

REACTIONS (9)
  - DIARRHOEA [None]
  - SKIN HYPERPIGMENTATION [None]
  - FATIGUE [None]
  - VOMITING [None]
  - DYSGEUSIA [None]
  - MUCOSAL INFLAMMATION [None]
  - PALMAR-PLANTAR ERYTHRODYSAESTHESIA SYNDROME [None]
  - VISUAL IMPAIRMENT [None]
  - NAUSEA [None]
